FAERS Safety Report 7057576-8 (Version None)
Quarter: 2010Q4

REPORT INFORMATION
  Report Type: 
  Country: None (occurrence: None)
  Receive Date: 20101022
  Receipt Date: 20101011
  Transmission Date: 20110411
  Serious: Yes (Other)
  Sender: FDA-Public Use
  Company Number: IN-SANOFI-AVENTIS-2010SA062165

PATIENT
  Age: 40 Year
  Sex: Female

DRUGS (6)
  1. RIFAMPICIN [Suspect]
     Indication: TUBERCULOSIS
  2. STREPTOMYCIN [Suspect]
     Indication: TUBERCULOSIS
  3. ISONIAZID [Concomitant]
     Indication: TUBERCULOSIS
  4. PYRAZINAMIDE [Concomitant]
     Indication: TUBERCULOSIS
  5. ETHAMBUTOL HYDROCHLORIDE [Concomitant]
     Indication: TUBERCULOSIS
  6. LEVOFLOXACIN [Concomitant]

REACTIONS (5)
  - ARTHRALGIA [None]
  - PARAESTHESIA [None]
  - PURPURA [None]
  - THROMBOCYTOPENIA [None]
  - TINNITUS [None]
